FAERS Safety Report 7816124-2 (Version None)
Quarter: 2011Q4

REPORT INFORMATION
  Report Type: 
  Country: None (occurrence: None)
  Receive Date: 20111015
  Receipt Date: 20111012
  Transmission Date: 20120403
  Serious: Yes (Hospitalization)
  Sender: FDA-Public Use
  Company Number: CH-ROCHE-1000800

PATIENT
  Age: 47 Year
  Sex: Male
  Weight: 73 kg

DRUGS (1)
  1. VEMURAFENIB [Suspect]
     Indication: MALIGNANT MELANOMA
     Dosage: DOSE FORM: REPORTED AS 240 MG, LAST DOSE: 15 SEPTEMBER 2011
     Route: 048
     Dates: start: 20110820

REACTIONS (1)
  - PLEURAL EFFUSION [None]
